FAERS Safety Report 5976748-4 (Version None)
Quarter: 2008Q4

REPORT INFORMATION
  Report Type: 
  Country: None (occurrence: None)
  Receive Date: 20081201
  Receipt Date: 20081201
  Transmission Date: 20090506
  Serious: No
  Sender: FDA-Public Use
  Company Number: None

PATIENT
  Sex: Male

DRUGS (1)
  1. RESTORIL [Suspect]
     Dosage: 1 CAP AT BEDTIME PO
     Route: 048
     Dates: start: 20081025

REACTIONS (3)
  - FATIGUE [None]
  - IMPAIRED WORK ABILITY [None]
  - SOMNOLENCE [None]
